FAERS Safety Report 11889082 (Version 1)
Quarter: 2016Q1

REPORT INFORMATION
  Report Type: Spontaneous
  Country: US (occurrence: None)
  Receive Date: 20160104
  Receipt Date: 20160104
  Transmission Date: 20160526
  Serious: Yes (Life-Threatening, Hospitalization, Other)
  Sender: FDA-Public Use
  Company Number: None

PATIENT
  Age: 52 Year
  Sex: Male
  Weight: 79.38 kg

DRUGS (3)
  1. LOTRIMIN [Suspect]
     Active Substance: CLOTRIMAZOLE
     Indication: MILIARIA
     Dosage: 4 YEARS, WARMER MONTHS ONLY?CREAM, APPLIED TO A SURFACE USUALLY THE SKIN
  2. OMEGA 3 [Concomitant]
     Active Substance: OMEGA-3 FATTY ACIDS
  3. ACIDOPHOLUS [Concomitant]

REACTIONS (1)
  - Prostate cancer [None]

NARRATIVE: CASE EVENT DATE: 20150715
